FAERS Safety Report 5094645-6 (Version None)
Quarter: 2006Q3

REPORT INFORMATION
  Report Type: 
  Country: None (occurrence: None)
  Receive Date: 20060830
  Receipt Date: 20060815
  Transmission Date: 20061208
  Serious: Yes (Death, Hospitalization)
  Sender: FDA-Public Use
  Company Number: US_0510123258

PATIENT
  Age: 43 Year
  Sex: Male
  Weight: 90.9 kg

DRUGS (2)
  1. ZYPREXA [Suspect]
     Indication: BIPOLAR DISORDER
     Dosage: 5 MG
     Dates: start: 20040301
  2. LOPRESSOR [Concomitant]

REACTIONS (7)
  - ANGIOPATHY [None]
  - DIABETES MELLITUS [None]
  - MENTAL STATUS CHANGES [None]
  - OBESITY [None]
  - RESPIRATORY FAILURE [None]
  - TREMOR [None]
  - WEIGHT INCREASED [None]
